FAERS Safety Report 4780042-7 (Version None)
Quarter: 2005Q3

REPORT INFORMATION
  Report Type: 
  Country: None (occurrence: None)
  Receive Date: 20050914
  Receipt Date: 20050608
  Transmission Date: 20060218
  Serious: Yes (Hospitalization, Other)
  Sender: FDA-Public Use
  Company Number: 163-20785-04070022 (1)

PATIENT
  Age: 75 Year
  Sex: Male
  Weight: 89.6 kg

DRUGS (2)
  1. THALOMID [Suspect]
     Indication: PROSTATE CANCER
     Dosage: SEE IMAGE
     Route: 048
     Dates: start: 20030113, end: 20040620
  2. LEUPROLIDE ACETATE [Suspect]
     Indication: PROSTATE CANCER
     Dosage: SEE IMAGE
     Route: 058
     Dates: start: 20030113, end: 20030414

REACTIONS (3)
  - BLADDER CANCER [None]
  - CEREBRAL ISCHAEMIA [None]
  - HAEMATURIA [None]
